FAERS Safety Report 5605299-1 (Version None)
Quarter: 2008Q1

REPORT INFORMATION
  Report Type: 
  Country: None (occurrence: None)
  Receive Date: 20080123
  Receipt Date: 20080114
  Transmission Date: 20080703
  Serious: Yes (Death)
  Sender: FDA-Public Use
  Company Number: B0503204A

PATIENT
  Age: 44 Year
  Sex: Male

DRUGS (9)
  1. ROPINIROLE HCL [Suspect]
     Dosage: ORAL
     Route: 048
  2. LAMOTRIGINE [Suspect]
     Dosage: ORAL
     Route: 048
  3. DONEPEZIL HCL [Suspect]
     Dosage: ORAL
     Route: 048
  4. TACRINE (FORMULATION UNKNOWN) (TACRINE) [Suspect]
     Dosage: ORAL
     Route: 048
  5. AMANTADINE HCL [Suspect]
     Dosage: ORAL
     Route: 048
  6. METAXALONE [Suspect]
     Dosage: ORAL
     Route: 048
  7. CLONAZEPAM [Suspect]
     Dosage: ORAL
     Route: 048
  8. MEMANTINE HCL [Suspect]
     Dosage: ORAL
     Route: 048
  9. BROMOCRIPTINE                     (FORMULATION UNKNOWN) [Suspect]
     Dosage: ORAL
     Route: 048

REACTIONS (1)
  - DEATH [None]
